FAERS Safety Report 16315633 (Version 1)
Quarter: 2019Q2

REPORT INFORMATION
  Report Type: Spontaneous
  Country: PH (occurrence: PH)
  Receive Date: 20190515
  Receipt Date: 20190515
  Transmission Date: 20190711
  Serious: Yes (Death)
  Sender: FDA-Public Use
  Company Number: PH-JNJFOC-20190518739

PATIENT
  Age: 78 Year
  Sex: Female

DRUGS (7)
  1. THYRAX [Concomitant]
     Active Substance: LEVOTHYROXINE
     Route: 065
  2. LANOXIN [Concomitant]
     Active Substance: DIGOXIN
     Route: 065
  3. LOSARTAN. [Concomitant]
     Active Substance: LOSARTAN
     Route: 065
  4. ARCOXIA [Concomitant]
     Active Substance: ETORICOXIB
     Route: 065
  5. XARELTO [Suspect]
     Active Substance: RIVAROXABAN
     Indication: PRODUCT USED FOR UNKNOWN INDICATION
     Route: 048
  6. RIVOTRIL [Concomitant]
     Active Substance: CLONAZEPAM
     Route: 065
  7. AMLODIPINE [Concomitant]
     Active Substance: AMLODIPINE BESYLATE
     Route: 065

REACTIONS (2)
  - Peripheral ischaemia [Fatal]
  - Cerebrovascular accident [Fatal]
